FAERS Safety Report 5848032-0 (Version None)
Quarter: 2008Q3

REPORT INFORMATION
  Report Type: 
  Country: None (occurrence: None)
  Receive Date: 20080814
  Receipt Date: 20080805
  Transmission Date: 20090109
  Serious: Yes (Other)
  Sender: FDA-Public Use
  Company Number: 2008AP001937

PATIENT
  Age: 60 Year
  Sex: Female

DRUGS (3)
  1. ALENDRONATE SODIUM [Suspect]
     Indication: OSTEOPOROSIS
     Dosage: 70 MG; QW PO
     Route: 048
     Dates: end: 20080610
  2. IBUPROFEN [Concomitant]
  3. IBUPROFEN [Concomitant]

REACTIONS (5)
  - ABDOMINAL DISCOMFORT [None]
  - HALLUCINATION [None]
  - MOOD ALTERED [None]
  - MYODESOPSIA [None]
  - SUICIDAL IDEATION [None]
